FAERS Safety Report 9399937 (Version 1)
Quarter: 2013Q3

REPORT INFORMATION
  Report Type: Report from Study
  Country: US (occurrence: US)
  Receive Date: 20130715
  Receipt Date: 20130715
  Transmission Date: 20140515
  Serious: Yes (Hospitalization, Other)
  Sender: FDA-Public Use
  Company Number: US-ABBOTT-13P-163-1094347-00

PATIENT
  Age: 69 Year
  Sex: Male

DRUGS (7)
  1. HUMIRA [Suspect]
     Indication: COLITIS ULCERATIVE
     Dosage: LOADING DOSE DAY 1
     Dates: start: 20130408, end: 20130408
  2. HUMIRA [Suspect]
     Dosage: TWO WEEKS LATER
  3. HUMIRA [Suspect]
  4. CRESTOR [Concomitant]
     Indication: BLOOD CHOLESTEROL ABNORMAL
  5. TYLENOL [Concomitant]
     Indication: PAIN
  6. LIALDA [Concomitant]
     Indication: COLITIS
  7. STEROIDS [Concomitant]
     Indication: PRODUCT USED FOR UNKNOWN INDICATION
     Dosage: WEANED OF AT START, LAST DOSE TAKEN 1 WEEK AFTER SECOND LOADING DOSE ON 22 APR 2013

REACTIONS (9)
  - Oesophageal disorder [Not Recovered/Not Resolved]
  - Catheterisation cardiac [Not Recovered/Not Resolved]
  - Colitis ulcerative [Not Recovered/Not Resolved]
  - Feeling abnormal [Not Recovered/Not Resolved]
  - Colitis [Not Recovered/Not Resolved]
  - Arthralgia [Not Recovered/Not Resolved]
  - Dyspnoea [Not Recovered/Not Resolved]
  - Fatigue [Not Recovered/Not Resolved]
  - Colitis ulcerative [Unknown]
